FAERS Safety Report 20572583 (Version 1)
Quarter: 2022Q1

REPORT INFORMATION
  Report Type: Spontaneous
  Country: US (occurrence: US)
  Receive Date: 20220309
  Receipt Date: 20220309
  Transmission Date: 20220423
  Serious: No
  Sender: FDA-Public Use
  Company Number: US-PFIZER INC-202101333485

PATIENT
  Age: 49 Year
  Sex: Female
  Weight: 45.36 kg

DRUGS (2)
  1. PREMARIN [Suspect]
     Active Substance: ESTROGENS, CONJUGATED
     Indication: Vulvovaginal dryness
     Dosage: 2 G, DAILY
     Dates: start: 20210914, end: 202109
  2. PREMARIN [Suspect]
     Active Substance: ESTROGENS, CONJUGATED
     Dosage: 1G, 1X/DAY (INSERT 1/2 APPLICATOR FULL) VAGINALLY ONCE DAILY FOR 28 DAYS)
     Dates: start: 202109, end: 20210929

REACTIONS (8)
  - Dysuria [Recovering/Resolving]
  - Vulvovaginal burning sensation [Recovering/Resolving]
  - Pruritus [Recovering/Resolving]
  - Abdominal distension [Recovering/Resolving]
  - Weight decreased [Unknown]
  - Pain [Recovering/Resolving]
  - Insomnia [Unknown]
  - Product dose omission issue [Unknown]

NARRATIVE: CASE EVENT DATE: 20210901
